FAERS Safety Report 14978036 (Version 3)
Quarter: 2018Q2

REPORT INFORMATION
  Report Type: Spontaneous
  Country: DE (occurrence: DE)
  Receive Date: 20180606
  Receipt Date: 20180628
  Transmission Date: 20180711
  Serious: Yes (Other)
  Sender: FDA-Public Use
  Company Number: DE-MERCK KGAA-2049062

PATIENT
  Sex: Male

DRUGS (4)
  1. NOVOTHYROX [Suspect]
     Active Substance: LEVOTHYROXINE SODIUM
     Indication: POST PROCEDURAL HYPOTHYROIDISM
     Dates: start: 201709, end: 20180123
  2. EUTHYROX [Suspect]
     Active Substance: LEVOTHYROXINE SODIUM
     Dates: start: 201803, end: 201803
  3. EUTHYROX [Suspect]
     Active Substance: LEVOTHYROXINE SODIUM
     Dates: start: 201803, end: 201804
  4. EUTHYROX [Suspect]
     Active Substance: LEVOTHYROXINE SODIUM
     Dates: start: 201804

REACTIONS (25)
  - Blood thyroid stimulating hormone decreased [None]
  - Angina pectoris [None]
  - Memory impairment [None]
  - Chest pain [None]
  - Fatigue [None]
  - Peripheral coldness [None]
  - Blood thyroid stimulating hormone increased [None]
  - Blood cholesterol increased [None]
  - Heart rate increased [None]
  - Cardiac discomfort [None]
  - Feeling abnormal [None]
  - Somnolence [None]
  - Thyroxine free increased [None]
  - Blood pressure increased [None]
  - Tinnitus [None]
  - Head discomfort [None]
  - Dysphonia [None]
  - Nausea [Not Recovered/Not Resolved]
  - Increased appetite [None]
  - Hypotension [Recovered/Resolved]
  - Insomnia [None]
  - Decreased appetite [Not Recovered/Not Resolved]
  - Feeling cold [None]
  - Paraesthesia [None]
  - Palpitations [Not Recovered/Not Resolved]

NARRATIVE: CASE EVENT DATE: 201711
